FAERS Safety Report 6993973-4 (Version None)
Quarter: 2010Q3

REPORT INFORMATION
  Report Type: 
  Country: None (occurrence: None)
  Receive Date: 20100917
  Receipt Date: 20090712
  Transmission Date: 20110219
  Serious: Yes (Other)
  Sender: FDA-Public Use
  Company Number: US-ASTRAZENECA-2007UW05838

PATIENT
  Age: 14612 Day
  Sex: Male

DRUGS (5)
  1. SEROQUEL [Suspect]
     Dosage: 100 MG TO 500 MG
     Route: 048
     Dates: start: 20050305
  2. FLEXERIL [Concomitant]
     Dosage: 10 MG TID AS REQUIRED
     Dates: start: 20050305
  3. TRAZODONE HCL [Concomitant]
     Dates: start: 20050305
  4. PREDNISONE [Concomitant]
     Dates: start: 20060327
  5. STRATERAA [Concomitant]
     Dosage: 40 MG FOR 3 DAYS AND THEN 80 MAG DAILY
     Dates: start: 20050305

REACTIONS (3)
  - KETOACIDOSIS [None]
  - PANCREATITIS [None]
  - TYPE 2 DIABETES MELLITUS [None]
